FAERS Safety Report 24200891 (Version 1)
Quarter: 2024Q3

REPORT INFORMATION
  Report Type: Spontaneous
  Country: US (occurrence: None)
  Receive Date: 20240809
  Receipt Date: 20240809
  Transmission Date: 20241017
  Serious: Yes (Life-Threatening, Hospitalization, Disabling)
  Sender: Public
  Company Number: None

PATIENT
  Age: 54 Year
  Sex: Male
  Weight: 104.33 kg

DRUGS (2)
  1. DESMOPRESSIN [Suspect]
     Active Substance: DESMOPRESSIN
     Indication: Urinary incontinence
     Dosage: OTHER FREQUENCY : ONE SPRAY AT 9:00PM MORNING/BEDTIMETABLET ?OTHER ROUTE : NOSE/MOUTH ??ESTIMATE  OF
     Route: 050
     Dates: start: 20070412, end: 20120829
  2. DESMOPRESSIN [Suspect]
     Active Substance: DESMOPRESSIN
     Dates: start: 20070624, end: 20180618

REACTIONS (9)
  - Seizure [None]
  - Fall [None]
  - Craniocerebral injury [None]
  - Hyponatraemia [None]
  - Coma [None]
  - Amnesia [None]
  - Wheelchair user [None]
  - Hypertension [None]
  - Mental status changes [None]

NARRATIVE: CASE EVENT DATE: 20070616
